FAERS Safety Report 4647298-2 (Version None)
Quarter: 2005Q2

REPORT INFORMATION
  Report Type: 
  Country: None (occurrence: None)
  Receive Date: 20050426
  Receipt Date: 20050411
  Transmission Date: 20051028
  Serious: Yes (Other)
  Sender: FDA-Public Use
  Company Number: AU-2005-005259

PATIENT
  Age: 46 Year
  Sex: Male
  Weight: 120 kg

DRUGS (2)
  1. ULTRAVIST 370 [Suspect]
     Indication: COMPUTERISED TOMOGRAM
     Dosage: 75 ML, 1 DOSE, INTRAVENOUS
     Route: 042
     Dates: start: 20050408, end: 20050408
  2. DILANTIN /AUS/ (PHENYTOIN SODIUM) [Concomitant]

REACTIONS (5)
  - COUGH [None]
  - CYANOSIS [None]
  - HYPOAESTHESIA [None]
  - THROAT TIGHTNESS [None]
  - URTICARIA [None]
